FAERS Safety Report 22092953 (Version 7)
Quarter: 2024Q2

REPORT INFORMATION
  Report Type: Other
  Country: CA (occurrence: None)
  Receive Date: 20230314
  Receipt Date: 20240429
  Transmission Date: 20240716
  Serious: Yes (Other)
  Sender: FDA-Public Use
  Company Number: CA-ROCHE-3269504

PATIENT
  Sex: Female

DRUGS (1)
  1. OCREVUS [Suspect]
     Active Substance: OCRELIZUMAB
     Indication: Relapsing-remitting multiple sclerosis
     Dosage: 300 MG AT DAY 0 AND 14, THEN 600 MG FOR EVERY 6 MONTH
     Route: 042
     Dates: start: 20230112

REACTIONS (4)
  - Urinary tract infection fungal [Unknown]
  - Nasopharyngitis [Unknown]
  - Headache [Unknown]
  - Upper respiratory tract infection [Unknown]
